FAERS Safety Report 9526925 (Version 1)
Quarter: 2013Q1

REPORT INFORMATION
  Report Type: Spontaneous
  Country: US (occurrence: None)
  Receive Date: 20130311
  Receipt Date: 20130311
  Transmission Date: 20140127
  Serious: No
  Sender: FDA-Public Use
  Company Number: 1301USA010817

PATIENT
  Age: 58 Year
  Sex: Male

DRUGS (3)
  1. ZIOPTAN (TAFLUPROST) EYE DROPS, SOLUTION, 0.0015% [Suspect]
     Indication: GLAUCOMA
     Dosage: 0.0015%/ONE DROP IN THE RIGHT EYE IN THE EVENING, OPHTHALMIC
     Route: 047
     Dates: start: 201211
  2. ATENOLOL [Concomitant]
  3. ZETIA (EZETIMIBE) [Concomitant]

REACTIONS (3)
  - Eyelids pruritus [None]
  - Eyelid disorder [None]
  - Erythema of eyelid [None]
